FAERS Safety Report 15347091 (Version 2)
Quarter: 2018Q3

REPORT INFORMATION
  Report Type: Report from Study
  Country: None (occurrence: BE)
  Receive Date: 20180904
  Receipt Date: 20180917
  Transmission Date: 20181010
  Serious: Yes (Hospitalization)
  Sender: FDA-Public Use
  Company Number: BE-ABBVIE-18S-013-2473011-00

PATIENT
  Sex: Female

DRUGS (7)
  1. DUODOPA [Suspect]
     Active Substance: CARBIDOPA\LEVODOPA
     Indication: PARKINSON^S DISEASE
     Dosage: MD= 7ML, CD= 2.5ML/HR DURING 16HRS, ED= 3ML
     Route: 050
     Dates: start: 20130715, end: 20130723
  2. DUODOPA [Suspect]
     Active Substance: CARBIDOPA\LEVODOPA
     Dosage: MD:1ML; CD: 4.3ML/H FOR 16HRS; ND: 2.2ML/H FOR 8HRS; ED: 2.2ML
     Route: 050
     Dates: start: 20180828, end: 20180911
  3. DUODOPA [Suspect]
     Active Substance: CARBIDOPA\LEVODOPA
     Dosage: NOT REPORTED
     Route: 050
     Dates: start: 20180911
  4. DAFALGAN FORTE [Concomitant]
     Indication: PRODUCT USED FOR UNKNOWN INDICATION
     Dosage: MAX 4X PER DAY
     Route: 065
  5. DUODOPA [Suspect]
     Active Substance: CARBIDOPA\LEVODOPA
     Dosage: DOSES CONTINUOUSLY MONITORED AND ADAPTED
     Route: 050
     Dates: start: 20130723, end: 20161012
  6. DUODOPA [Suspect]
     Active Substance: CARBIDOPA\LEVODOPA
     Dosage: MD= 1ML, CD= 4.3ML/HR DURING 16HRS, ED= 2.2ML, ND= 2.2ML/HR DURING 8HRS (IF APPLICABLE)
     Route: 050
     Dates: start: 20161012, end: 20180828
  7. SULFERIX [Concomitant]
     Indication: NAUSEA
     Route: 065

REACTIONS (4)
  - Dyspnoea [Not Recovered/Not Resolved]
  - Hyperkinesia [Not Recovered/Not Resolved]
  - General physical health deterioration [Not Recovered/Not Resolved]
  - Dyskinesia [Not Recovered/Not Resolved]
